FAERS Safety Report 20188081 (Version 1)
Quarter: 2021Q4

REPORT INFORMATION
  Report Type: Spontaneous
  Country: US (occurrence: None)
  Receive Date: 20211215
  Receipt Date: 20211215
  Transmission Date: 20220303
  Serious: Yes (Death)
  Sender: FDA-Public Use
  Company Number: None

PATIENT
  Age: 69 Year
  Sex: Female

DRUGS (2)
  1. TACROLIMUS [Suspect]
     Active Substance: TACROLIMUS
     Indication: Lung transplant
     Dosage: OTHER QUANTITY : 4CS;?OTHER FREQUENCY : QAM;?
     Route: 048
     Dates: start: 20200325, end: 20211211
  2. TACROLIMUS [Suspect]
     Active Substance: TACROLIMUS
     Dosage: OTHER QUANTITY : 1C;?OTHER FREQUENCY :EVERY PM?
     Route: 048
     Dates: start: 20211001, end: 20211211

REACTIONS (2)
  - Hospice care [None]
  - Disease progression [None]
